FAERS Safety Report 18193312 (Version 1)
Quarter: 2020Q3

REPORT INFORMATION
  Report Type: Report from Study
  Country: US (occurrence: US)
  Receive Date: 20200825
  Receipt Date: 20200825
  Transmission Date: 20201103
  Serious: Yes (Life-Threatening, Hospitalization, Other)
  Sender: FDA-Public Use
  Company Number: US-009507513-2007USA002249

PATIENT
  Age: 70 Year
  Sex: Female
  Weight: 107 kg

DRUGS (7)
  1. TAXOL [Suspect]
     Active Substance: PACLITAXEL
     Indication: ENDOMETRIAL ADENOCARCINOMA
     Dosage: 175 MILLIGRAM/SQ. METER, ON SAY 1 OF EACH CYCLE EVERY THREE WEEKS (Q3W)
     Route: 042
     Dates: start: 20200330, end: 20200604
  2. LOVENOX [Suspect]
     Active Substance: ENOXAPARIN SODIUM
  3. CARBOPLATIN. [Suspect]
     Active Substance: CARBOPLATIN
     Indication: ENDOMETRIAL ADENOCARCINOMA
     Dosage: AREA UNDER CURVE (AUC) 5, ON DAY 1 OF EACH CYCLE EVERY THREE WEEKS (Q3W)
     Route: 042
     Dates: start: 20200330, end: 20200604
  4. PRINIVIL [Suspect]
     Active Substance: LISINOPRIL
  5. BLINDED PEMBROLIZUMAB [Suspect]
     Active Substance: PEMBROLIZUMAB
     Indication: ENDOMETRIAL ADENOCARCINOMA
     Dosage: UNK
     Route: 042
     Dates: start: 20200330, end: 20200421
  6. BUMETANIDE. [Suspect]
     Active Substance: BUMETANIDE
     Dosage: 2 MILLIGRAM, BID
     Route: 048
  7. PREDNISONE. [Suspect]
     Active Substance: PREDNISONE

REACTIONS (9)
  - Neutrophil count decreased [Unknown]
  - Delirium [Not Recovered/Not Resolved]
  - Hypokalaemia [Unknown]
  - Platelet count decreased [Recovered/Resolved]
  - Hypophosphataemia [Unknown]
  - Anaemia [Recovered/Resolved]
  - Urinary tract infection [Unknown]
  - Diarrhoea [Recovered/Resolved]
  - Febrile neutropenia [Recovered/Resolved with Sequelae]

NARRATIVE: CASE EVENT DATE: 20200610
